FAERS Safety Report 9303821 (Version 2)
Quarter: 2013Q2

REPORT INFORMATION
  Report Type: Report from Study
  Country: GR (occurrence: GR)
  Receive Date: 20130522
  Receipt Date: 20130528
  Transmission Date: 20140414
  Serious: Yes (Hospitalization)
  Sender: FDA-Public Use
  Company Number: GR-GLAXOSMITHKLINE-B0893059A

PATIENT
  Age: 72 Year
  Sex: Male

DRUGS (2)
  1. PAZOPANIB [Suspect]
     Indication: RENAL CELL CARCINOMA
     Dosage: 800MG PER DAY
     Dates: start: 20121205
  2. LEVODOPA [Concomitant]
     Indication: PARKINSON^S DISEASE
     Dosage: 250MG THREE TIMES PER DAY
     Route: 048
     Dates: start: 20130422

REACTIONS (2)
  - Pulmonary oedema [Recovering/Resolving]
  - Cardiac disorder [Recovering/Resolving]
